FAERS Safety Report 20191807 (Version 1)
Quarter: 2021Q4

REPORT INFORMATION
  Report Type: Spontaneous
  Country: FI (occurrence: FI)
  Receive Date: 20211216
  Receipt Date: 20211216
  Transmission Date: 20220304
  Serious: Yes (Hospitalization)
  Sender: FDA-Public Use
  Company Number: FI-ABBVIE-21K-055-4194706-00

PATIENT
  Age: 75 Year
  Sex: Male

DRUGS (1)
  1. VENETOCLAX [Suspect]
     Active Substance: VENETOCLAX
     Indication: Chronic lymphocytic leukaemia
     Route: 048
     Dates: start: 20211103

REACTIONS (4)
  - Haemolysis [Unknown]
  - Antibody test positive [Unknown]
  - Red blood cell agglutination [Unknown]
  - Reticulocytosis [Unknown]

NARRATIVE: CASE EVENT DATE: 20210101
